FAERS Safety Report 5957269-1 (Version None)
Quarter: 2008Q4

REPORT INFORMATION
  Report Type: 
  Country: None (occurrence: None)
  Receive Date: 20081118
  Receipt Date: 20081114
  Transmission Date: 20090506
  Serious: Yes (Other)
  Sender: FDA-Public Use
  Company Number: DE-B.I. PHARMACEUTICALS,INC./RIDGEFIELD-2008-DE-06982DE

PATIENT
  Sex: Male

DRUGS (1)
  1. AGGRENOX [Suspect]

REACTIONS (2)
  - CEREBROVASCULAR ACCIDENT [None]
  - HAEMORRHAGE [None]
